FAERS Safety Report 23650010 (Version 1)
Quarter: 2024Q1

REPORT INFORMATION
  Report Type: Spontaneous
  Country: US (occurrence: None)
  Receive Date: 20240319
  Receipt Date: 20240319
  Transmission Date: 20240410
  Serious: No
  Sender: FDA-Public Use
  Company Number: US-ROCHE-3312922

PATIENT
  Age: 95 Year
  Sex: Male

DRUGS (7)
  1. ERIVEDGE [Suspect]
     Active Substance: VISMODEGIB
     Indication: Squamous cell carcinoma of skin
     Dosage: TAKE 1 CAPSULE BY MOUTH ONCE A DAY FOR 7 CONSECUTIVE  DAYS EACH MONTH, SWALLOW WHOLE
     Route: 048
  2. AMLODIPINE BESYLATE [Concomitant]
     Active Substance: AMLODIPINE BESYLATE
  3. ATENOLOL [Concomitant]
     Active Substance: ATENOLOL
  4. MOBIC [Concomitant]
     Active Substance: MELOXICAM
  5. TRAMADOL HCL [Concomitant]
     Active Substance: TRAMADOL HYDROCHLORIDE
  6. TYLENOL [Concomitant]
     Active Substance: ACETAMINOPHEN
  7. XARELTO [Concomitant]
     Active Substance: RIVAROXABAN

REACTIONS (2)
  - Off label use [Unknown]
  - No adverse event [Unknown]
